FAERS Safety Report 7549823-0 (Version None)
Quarter: 2011Q2

REPORT INFORMATION
  Report Type: 
  Country: None (occurrence: None)
  Receive Date: 20110615
  Receipt Date: 20110606
  Transmission Date: 20111010
  Serious: Yes (Hospitalization)
  Sender: FDA-Public Use
  Company Number: JP-MERCK-1105USA04196

PATIENT
  Age: 71 Year
  Sex: Male
  Weight: 66 kg

DRUGS (6)
  1. LIPIDIL [Concomitant]
     Indication: BLOOD CHOLESTEROL INCREASED
     Route: 048
     Dates: end: 20110428
  2. RABEPRAZOLE SODIUM [Concomitant]
     Indication: PROPHYLAXIS AGAINST GASTROINTESTINAL ULCER
     Route: 048
     Dates: end: 20110428
  3. ACECOL [Concomitant]
     Indication: HYPERTENSION
     Route: 048
     Dates: end: 20110428
  4. ASPIRIN [Concomitant]
     Indication: CEREBROVASCULAR ACCIDENT PROPHYLAXIS
     Route: 048
     Dates: end: 20110428
  5. MUCOSOLVAN [Concomitant]
     Indication: COUGH
     Route: 048
     Dates: end: 20110428
  6. JANUVIA [Suspect]
     Indication: HYPERGLYCAEMIA
     Route: 048
     Dates: start: 20110408, end: 20110428

REACTIONS (1)
  - INTERSTITIAL LUNG DISEASE [None]
